FAERS Safety Report 7588311-2 (Version None)
Quarter: 2011Q3

REPORT INFORMATION
  Report Type: 
  Country: None (occurrence: None)
  Receive Date: 20110705
  Receipt Date: 20080331
  Transmission Date: 20111222
  Serious: Yes (Death, Hospitalization, Other)
  Sender: FDA-Public Use
  Company Number: US-BAYER-200818581NA

PATIENT
  Age: 50 Year
  Sex: Female
  Weight: 81.179 kg

DRUGS (14)
  1. CARVEDILOL [Concomitant]
     Dosage: UNK
     Route: 048
     Dates: start: 19991214
  2. BUMEX [Concomitant]
     Dosage: UNK
     Route: 048
     Dates: start: 19910101
  3. PROCARDIA XL [Concomitant]
     Dosage: UNK
     Route: 048
     Dates: start: 19910101
  4. METOPROLOL TARTRATE [Concomitant]
     Dosage: 100 MG, BID
     Route: 048
     Dates: start: 19980728
  5. COZAAR [Concomitant]
     Dosage: 100 MG, UNK
     Route: 048
  6. TRASYLOL [Suspect]
     Indication: CORONARY ARTERY BYPASS
     Dosage: 200 ML, ONCE, CARDIOPULMONARY BYPASS PRIME
     Route: 042
     Dates: start: 20060301
  7. ETOMIDATE [Concomitant]
     Dosage: UNK
     Route: 042
     Dates: start: 20060301, end: 20060301
  8. PRIMACOR [Concomitant]
     Dosage: UNK
     Route: 042
     Dates: start: 20060301
  9. TEGRETOL [Concomitant]
     Dosage: 200 MG, TID
     Route: 048
     Dates: start: 19880101
  10. SUFENTANIL CITRATE [Concomitant]
     Dosage: UNK
     Route: 042
     Dates: start: 20060301, end: 20060301
  11. PROTAMINE SULFATE [Concomitant]
     Dosage: UNK
     Route: 042
     Dates: start: 20060301, end: 20060301
  12. PLAVIX [Concomitant]
     Dosage: 75MG ONCE A DAY
     Route: 048
  13. VERSED [Concomitant]
     Dosage: UNK
     Route: 042
     Dates: start: 20060301, end: 20060301
  14. PAVULON [Concomitant]
     Dosage: UNK
     Route: 042
     Dates: start: 20060301, end: 20060301

REACTIONS (4)
  - INJURY [None]
  - CEREBROVASCULAR ACCIDENT [None]
  - POST PROCEDURAL COMPLICATION [None]
  - RENAL FAILURE [None]
